FAERS Safety Report 18925490 (Version 2)
Quarter: 2021Q1

REPORT INFORMATION
  Report Type: Spontaneous
  Country: US (occurrence: US)
  Receive Date: 20210222
  Receipt Date: 20210223
  Transmission Date: 20210420
  Serious: Yes (Death, Hospitalization, Disabling, Other)
  Sender: FDA-Public Use
  Company Number: US-HORIZON THERAPEUTICS-HZN-2021-000380

PATIENT

DRUGS (4)
  1. PREDNISONE. [Suspect]
     Active Substance: PREDNISONE
     Indication: GRAFT VERSUS HOST DISEASE IN GASTROINTESTINAL TRACT
     Dosage: 20 MG, BID
     Route: 065
  2. MELPHALAN. [Suspect]
     Active Substance: MELPHALAN
     Indication: DISEASE RECURRENCE
     Dosage: 0.5 MG/KG, QD
     Route: 065
  3. PREDNISONE. [Suspect]
     Active Substance: PREDNISONE
     Indication: PERICARDITIS
     Dosage: 10 MG, QD
     Route: 065
  4. FLUDARABINE [Suspect]
     Active Substance: FLUDARABINE PHOSPHATE
     Indication: DISEASE RECURRENCE
     Dosage: 0.5 MG/KG, QD
     Route: 065

REACTIONS (5)
  - Diffuse large B-cell lymphoma [Fatal]
  - Stress fracture [Recovered/Resolved]
  - Acetabulum fracture [Recovered/Resolved]
  - Osteonecrosis [Recovered/Resolved]
  - Graft versus host disease [Fatal]
